FAERS Safety Report 4655371-8 (Version None)
Quarter: 2005Q2

REPORT INFORMATION
  Report Type: 
  Country: None (occurrence: None)
  Receive Date: 20050505
  Receipt Date: 20050414
  Transmission Date: 20051028
  Serious: No
  Sender: FDA-Public Use
  Company Number: US_0411107605

PATIENT
  Age: 53 Year
  Sex: Female
  Weight: 102 kg

DRUGS (12)
  1. ZYPREXA [Suspect]
     Indication: BIPOLAR DISORDER
     Dosage: 10 MG AT BEDTIME
     Dates: start: 20030430, end: 20040111
  2. SYMBYAX [Suspect]
     Indication: BIPOLAR DISORDER
     Dates: start: 20030507, end: 20040512
  3. BUPROPION [Concomitant]
  4. GLIPIZIDE [Concomitant]
  5. METFORMIN HCL [Concomitant]
  6. ALLEGRA D 24 HOUR [Concomitant]
  7. PREMARIN [Concomitant]
  8. NEXIUM [Concomitant]
  9. LIPITOR (ATORVASTATN CALCIUM) [Concomitant]
  10. TOLTERODINE TARTRATE [Concomitant]
  11. VIOXX [Concomitant]
  12. MULTI-VITAMIN [Concomitant]

REACTIONS (6)
  - BLOOD CHOLESTEROL ABNORMAL [None]
  - BLOOD TRIGLYCERIDES INCREASED [None]
  - DIABETES MELLITUS NON-INSULIN-DEPENDENT [None]
  - HAEMATURIA [None]
  - POLYTRAUMATISM [None]
  - URINARY TRACT INFECTION [None]
